FAERS Safety Report 9831051 (Version 1)
Quarter: 2014Q1

REPORT INFORMATION
  Report Type: Report from Study
  Country: AU (occurrence: AU)
  Receive Date: 20140120
  Receipt Date: 20140120
  Transmission Date: 20141002
  Serious: Yes (Other)
  Sender: FDA-Public Use
  Company Number: PHHY2014AU006419

PATIENT
  Age: 82 Year
  Sex: Female

DRUGS (20)
  1. ACLASTA [Suspect]
     Dosage: 5 MG (5MG/100 ML), UNK
     Route: 042
     Dates: start: 20100716
  2. ACLASTA [Suspect]
     Dosage: 5 MG (5MG/100 ML), UNK
     Route: 042
     Dates: start: 20110808
  3. ACLASTA [Suspect]
     Dosage: 5 MG (5MG/100 ML), UNK
     Route: 042
     Dates: start: 20120828
  4. METHYLPREDNISOLONE ACEPONATE [Concomitant]
     Dosage: UNK UKN, DAILY
  5. AMOXIL//AMOXICILLIN TRIHYDRATE [Concomitant]
     Dosage: 1 DF, TID
  6. ENLAFAX [Concomitant]
     Dosage: 1 DF, DAILY
  7. LYRICA [Concomitant]
     Dosage: 3 UKN, 3 NIGHTS
  8. MOBIC [Concomitant]
     Dosage: 1 DF, DAILY
  9. NEXUM [Concomitant]
     Dosage: 1 DF, DAILY
  10. NORMISON [Concomitant]
     Dosage: 2 DF (1 TO 2 DF), PRN
  11. NORMISON [Concomitant]
     Dosage: 3 DF (1 TO 3 DF), PRN
  12. PANADEINE FORTE [Concomitant]
     Dosage: 2 DF (1 TO 2 DF), PRN (EVERY 4 HOURS)
  13. PANADEINE FORTE [Concomitant]
     Dosage: 2 DF (1 TO 2 DF), TID (PRN)
  14. PANADOL OSTEO [Concomitant]
     Dosage: 2 DF, TID (PRN)
  15. PIAX [Concomitant]
     Dosage: 1 DF, DAILY
  16. RULIDE [Concomitant]
     Dosage: 1 DF, DAILY (15 MIN BEFORE FOOD OR EMTY STOMACH)
  17. RULIDE [Concomitant]
     Dosage: 1 DF, BID (15 MIN BEFORE FOOD OR EMTY STOMACH)
  18. SPIRIVA [Concomitant]
     Dosage: 1 DF, DAILY
  19. VENTOLIN CR [Concomitant]
     Dosage: UNK UKN (2 TO 4 PUFFS), PRN (EVERY 4 HOURS)
  20. SYMBICORT [Concomitant]
     Dosage: 1 DF, BID

REACTIONS (27)
  - Pneumonia aspiration [Unknown]
  - Bronchopulmonary aspergillosis [Unknown]
  - Wound infection [Unknown]
  - Staphylococcal infection [Unknown]
  - Dysplastic naevus [Unknown]
  - Atrial fibrillation [Unknown]
  - Renal impairment [Unknown]
  - Blood creatine increased [Unknown]
  - Glomerular filtration rate decreased [Unknown]
  - Blood urea increased [Unknown]
  - Depression [Unknown]
  - Hiatus hernia [Unknown]
  - Hyperlipidaemia [Unknown]
  - Osteoporotic fracture [Unknown]
  - Rectal prolapse [Unknown]
  - Rib fracture [Unknown]
  - Keratoacanthoma [Unknown]
  - Vitamin D deficiency [Unknown]
  - Hypertonic bladder [Unknown]
  - Impaired fasting glucose [Unknown]
  - Bursitis [Unknown]
  - Spinal osteoarthritis [Unknown]
  - Anxiety [Unknown]
  - Gastrooesophageal reflux disease [Unknown]
  - Pruritus [Unknown]
  - Hypertension [Unknown]
  - Iron deficiency [Unknown]
